FAERS Safety Report 13721289 (Version 1)
Quarter: 2017Q3

REPORT INFORMATION
  Report Type: Spontaneous
  Country: US (occurrence: US)
  Receive Date: 20170705
  Receipt Date: 20170705
  Transmission Date: 20171127
  Serious: Yes (Other)
  Sender: FDA-Public Use
  Company Number: None

PATIENT
  Age: 38 Year
  Sex: Female
  Weight: 107.1 kg

DRUGS (8)
  1. MICROGESTIN [Concomitant]
     Active Substance: ETHINYL ESTRADIOL\NORETHINDRONE ACETATE
  2. WOMENS ONCE A DAY VITAMIN [Concomitant]
  3. BUPROPION XL [Concomitant]
     Active Substance: BUPROPION
  4. TOPIRAMATE. [Suspect]
     Active Substance: TOPIRAMATE
     Indication: RESTLESS LEGS SYNDROME
     Dosage: ?          OTHER STRENGTH:MG;QUANTITY:1 TABLET(S);?
     Route: 048
     Dates: start: 20170623, end: 20170704
  5. PROZAC [Concomitant]
     Active Substance: FLUOXETINE HYDROCHLORIDE
  6. PANTOPRAZOLE [Concomitant]
     Active Substance: PANTOPRAZOLE
  7. GUANFACINE. [Concomitant]
     Active Substance: GUANFACINE
  8. TEMAZEPAM. [Concomitant]
     Active Substance: TEMAZEPAM

REACTIONS (2)
  - Vision blurred [None]
  - Dysgeusia [None]

NARRATIVE: CASE EVENT DATE: 20170704
